FAERS Safety Report 6001203-5 (Version None)
Quarter: 2008Q4

REPORT INFORMATION
  Report Type: 
  Country: None (occurrence: None)
  Receive Date: 20081215
  Receipt Date: 20081201
  Transmission Date: 20090506
  Serious: No
  Sender: FDA-Public Use
  Company Number: GR-ELI_LILLY_AND_COMPANY-GR200812000143

PATIENT
  Age: 35 Year
  Sex: Female

DRUGS (2)
  1. ZYPREXA [Suspect]
     Indication: SCHIZOPHRENIA
     Dosage: 20 MG, DAILY (1/D)
     Route: 048
     Dates: start: 20080601
  2. NOZINAN [Concomitant]
     Indication: INSOMNIA
     Dosage: 25 MG, DAILY (1/D)
     Route: 048

REACTIONS (2)
  - HYPERPROLACTINAEMIA [None]
  - LEUKOPENIA [None]
